FAERS Safety Report 25150110 (Version 3)
Quarter: 2025Q2

REPORT INFORMATION
  Report Type: Spontaneous
  Country: US (occurrence: US)
  Receive Date: 20250402
  Receipt Date: 20250501
  Transmission Date: 20250717
  Serious: Yes (Hospitalization, Other)
  Sender: ALEXION PHARMACEUTICALS
  Company Number: US-AstraZeneca-CH-00835987AM

PATIENT
  Age: 74 Year
  Weight: 114.76 kg

DRUGS (1)
  1. FASENRA [Suspect]
     Active Substance: BENRALIZUMAB
     Indication: Asthma

REACTIONS (3)
  - Gallbladder rupture [Recovered/Resolved]
  - Cardiac failure [Recovered/Resolved]
  - Cholelithiasis [Unknown]
